FAERS Safety Report 8462867-X (Version None)
Quarter: 2012Q2

REPORT INFORMATION
  Report Type: 
  Country: None (occurrence: None)
  Receive Date: 20120625
  Receipt Date: 20120613
  Transmission Date: 20120825
  Serious: Yes (Death, Hospitalization)
  Sender: FDA-Public Use
  Company Number: DE-ROCHE-1078817

PATIENT
  Sex: Male
  Weight: 62 kg

DRUGS (1)
  1. MIRCERA [Suspect]
     Indication: ANAEMIA
     Dosage: LAST DOSE PRIOR TO SAE: 11/MAY/2011, INDICATION: ANAEMIA IN END-STAGE RENAL DISEASE
     Route: 058
     Dates: start: 20110114

REACTIONS (2)
  - SEPSIS [None]
  - DIVERTICULAR PERFORATION [None]
